FAERS Safety Report 12503203 (Version 6)
Quarter: 2018Q4

REPORT INFORMATION
  Report Type: Report from Study
  Country: JP (occurrence: JP)
  Receive Date: 20160628
  Receipt Date: 20181010
  Transmission Date: 20190204
  Serious: Yes (Death, Hospitalization, Other)
  Sender: FDA-Public Use
  Company Number: PHJP2016JP017871

PATIENT
  Age: 22 Year
  Sex: Female

DRUGS (22)
  1. PREDNISOLONE. [Concomitant]
     Active Substance: PREDNISOLONE
     Indication: RASH
     Dosage: 30 MG, QD
     Route: 048
     Dates: start: 20160613
  2. FUROSEMIDE. [Concomitant]
     Active Substance: FUROSEMIDE
     Dosage: 1 DF (1 TABLET), QD
     Route: 065
     Dates: start: 20160524
  3. FUROSEMIDE. [Concomitant]
     Active Substance: FUROSEMIDE
     Dosage: 2 DF (2 TABLET), QD
     Route: 065
     Dates: start: 20160527
  4. NAIXAN [Concomitant]
     Active Substance: NAPROXEN SODIUM
     Indication: PRODUCT USED FOR UNKNOWN INDICATION
     Dosage: UNK
     Route: 065
  5. NIVOLUMAB [Concomitant]
     Active Substance: NIVOLUMAB
     Dosage: 120 MG, UNK
     Route: 065
     Dates: start: 20160412, end: 20160412
  6. MEKINIST [Suspect]
     Active Substance: TRAMETINIB DIMETHYL SULFOXIDE
     Indication: MALIGNANT MELANOMA STAGE IV
     Dosage: 2 MG, QD
     Route: 048
     Dates: start: 20160601, end: 20160611
  7. FENTOS [Concomitant]
     Active Substance: FENTANYL
     Indication: PRODUCT USED FOR UNKNOWN INDICATION
     Dosage: UNK
     Route: 065
  8. OXINORM//OXYCODONE HYDROCHLORIDE [Concomitant]
     Active Substance: OXYCODONE HYDROCHLORIDE
     Indication: PRODUCT USED FOR UNKNOWN INDICATION
     Dosage: UNK
     Route: 048
  9. PREDNISOLONE. [Concomitant]
     Active Substance: PREDNISOLONE
     Dosage: 20 MG, QD
     Route: 048
     Dates: start: 20160617
  10. PREDNISOLONE. [Concomitant]
     Active Substance: PREDNISOLONE
     Dosage: 15 MG, QD
     Route: 048
     Dates: start: 20160622
  11. NIVOLUMAB [Concomitant]
     Active Substance: NIVOLUMAB
     Dosage: 120 MG, UNK
     Route: 065
     Dates: start: 20160426, end: 20160426
  12. OPSO [Concomitant]
     Active Substance: MORPHINE HYDROCHLORIDE
     Indication: PRODUCT USED FOR UNKNOWN INDICATION
     Dosage: UNK
     Route: 048
  13. PREDNISOLONE. [Concomitant]
     Active Substance: PREDNISOLONE
     Dosage: 20 MG, QD
     Route: 042
     Dates: start: 20160620, end: 20160621
  14. LASIX [Concomitant]
     Active Substance: FUROSEMIDE
     Indication: PRODUCT USED FOR UNKNOWN INDICATION
     Dosage: 1 DF (1 AMPULE), QD
     Route: 065
     Dates: start: 20160328
  15. NIVOLUMAB [Concomitant]
     Active Substance: NIVOLUMAB
     Indication: MALIGNANT MELANOMA STAGE IV
     Dosage: UNK
     Route: 065
     Dates: start: 20160324, end: 20160324
  16. ABSTRAL [Concomitant]
     Active Substance: FENTANYL CITRATE
     Indication: PRODUCT USED FOR UNKNOWN INDICATION
     Dosage: UNK
     Route: 065
  17. TAFINLAR [Suspect]
     Active Substance: DABRAFENIB MESYLATE
     Indication: MALIGNANT MELANOMA STAGE IV
     Dosage: 300 MG, QD
     Route: 048
     Dates: start: 20160601, end: 20160611
  18. PREDNISOLONE. [Concomitant]
     Active Substance: PREDNISOLONE
     Dosage: 15 MG, QD
     Route: 048
     Dates: start: 20160620, end: 20160620
  19. MEKINIST [Suspect]
     Active Substance: TRAMETINIB DIMETHYL SULFOXIDE
     Dosage: 1.5 MG, QD
     Route: 048
     Dates: start: 20160620, end: 20160621
  20. TAFINLAR [Suspect]
     Active Substance: DABRAFENIB MESYLATE
     Dosage: 100 MG, BID
     Route: 048
     Dates: start: 20160620, end: 20160621
  21. SPIRONOLACTONE. [Concomitant]
     Active Substance: SPIRONOLACTONE
     Indication: PRODUCT USED FOR UNKNOWN INDICATION
     Dosage: UNK
     Route: 065
     Dates: end: 20160517
  22. FUROSEMIDE. [Concomitant]
     Active Substance: FUROSEMIDE
     Indication: PRODUCT USED FOR UNKNOWN INDICATION
     Dosage: UNK
     Route: 065
     Dates: end: 20160517

REACTIONS (21)
  - Hypoaesthesia [Unknown]
  - Sputum retention [Unknown]
  - Heart rate increased [Unknown]
  - Metastases to peritoneum [Unknown]
  - Malignant melanoma stage IV [Fatal]
  - Nuchal rigidity [Unknown]
  - Rash [Recovered/Resolved]
  - Sinus tachycardia [Recovered/Resolved]
  - Tachycardia [Recovered/Resolved]
  - Abdominal pain [Unknown]
  - Metastases to meninges [Unknown]
  - C-reactive protein increased [Unknown]
  - Dyslalia [Unknown]
  - Pyrexia [Recovering/Resolving]
  - Malignant neoplasm progression [Fatal]
  - Metastases to bone [Unknown]
  - Eyelid disorder [Unknown]
  - Oxygen saturation decreased [Unknown]
  - Concomitant disease aggravated [Unknown]
  - Palpitations [Recovered/Resolved]
  - Rash [Recovering/Resolving]

NARRATIVE: CASE EVENT DATE: 20160602
